FAERS Safety Report 18472908 (Version 1)
Quarter: 2020Q4

REPORT INFORMATION
  Report Type: Spontaneous
  Country: US (occurrence: US)
  Receive Date: 20201104
  Receipt Date: 20201104
  Transmission Date: 20210114
  Serious: Yes (Other)
  Sender: FDA-Public Use
  Company Number: None

PATIENT
  Age: 77 Year
  Sex: Female
  Weight: 102.3 kg

DRUGS (1)
  1. CHLORHEXIDINE 0.12% RINSE [Suspect]
     Active Substance: CHLORHEXIDINE
     Indication: ANTIBIOTIC PROPHYLAXIS
     Route: 002
     Dates: start: 20201023, end: 20201028

REACTIONS (5)
  - Burkholderia infection [None]
  - Recalled product [None]
  - Product contamination microbial [None]
  - Sputum culture positive [None]
  - Transmission of an infectious agent via product [None]

NARRATIVE: CASE EVENT DATE: 20201029
